FAERS Safety Report 20937837 (Version 2)
Quarter: 2022Q3

REPORT INFORMATION
  Report Type: Report from Study
  Country: CA (occurrence: CA)
  Receive Date: 20220609
  Receipt Date: 20220726
  Transmission Date: 20221027
  Serious: Yes (Hospitalization, Other)
  Sender: FDA-Public Use
  Company Number: CA-SEATTLE GENETICS-2022SGN04054

PATIENT
  Age: 90 Year
  Sex: Male
  Weight: 62 kg

DRUGS (2)
  1. ENFORTUMAB VEDOTIN [Suspect]
     Active Substance: ENFORTUMAB VEDOTIN
     Indication: Transitional cell carcinoma
     Route: 065
  2. ENFORTUMAB VEDOTIN [Suspect]
     Active Substance: ENFORTUMAB VEDOTIN
     Route: 065

REACTIONS (19)
  - Myocardial infarction [Unknown]
  - Constipation [Unknown]
  - Somnolence [Recovered/Resolved]
  - Malaise [Unknown]
  - Taste disorder [Not Recovered/Not Resolved]
  - Weight decreased [Unknown]
  - Decreased appetite [Unknown]
  - Ocular hyperaemia [Unknown]
  - Faeces hard [Unknown]
  - Constipation [Unknown]
  - Fatigue [Unknown]
  - Nausea [Unknown]
  - Illness [Unknown]
  - Ageusia [Not Recovered/Not Resolved]
  - Dyspnoea [Not Recovered/Not Resolved]
  - Chest pain [Not Recovered/Not Resolved]
  - Parosmia [Not Recovered/Not Resolved]
  - Hernia [Unknown]
  - Asthenia [Unknown]

NARRATIVE: CASE EVENT DATE: 20220424
